FAERS Safety Report 6530955-0 (Version None)
Quarter: 2010Q1

REPORT INFORMATION
  Report Type: 
  Country: None (occurrence: None)
  Receive Date: 20100108
  Receipt Date: 20090714
  Transmission Date: 20100710
  Serious: No
  Sender: FDA-Public Use
  Company Number: A0796879A

PATIENT
  Age: 61 Year
  Sex: Male

DRUGS (12)
  1. LOVAZA [Suspect]
     Indication: HIGH DENSITY LIPOPROTEIN INCREASED
     Dosage: 4CAP PER DAY
     Route: 048
     Dates: start: 20090201
  2. AVALIDE [Concomitant]
  3. ASPIRIN [Concomitant]
  4. CALCIUM [Concomitant]
  5. NEXIUM [Concomitant]
  6. AVANDIA [Concomitant]
  7. METFORMIN HYDROCHLORIDE [Concomitant]
  8. JANUVIA [Concomitant]
  9. NEFAZODONE HCL [Concomitant]
  10. ANTARA (MICRONIZED) [Concomitant]
  11. LUNESTA [Concomitant]
  12. KLONOPIN [Concomitant]

REACTIONS (1)
  - GYNAECOMASTIA [None]
